FAERS Safety Report 14680691 (Version 7)
Quarter: 2019Q4

REPORT INFORMATION
  Report Type: Report from Study
  Country: ES (occurrence: ES)
  Receive Date: 20180326
  Receipt Date: 20191211
  Transmission Date: 20200122
  Serious: Yes (Other)
  Sender: FDA-Public Use
  Company Number: ES-GILEAD-2018-0328670

PATIENT
  Sex: Male
  Weight: 103 kg

DRUGS (4)
  1. PRAVASTATIN. [Concomitant]
     Active Substance: PRAVASTATIN
  2. DELTIUS [Concomitant]
     Active Substance: CHOLECALCIFEROL
     Dosage: 25000 IU, Q2WK
     Dates: start: 20180503
  3. ELVITEGRAVIR/COBICISTAT/EMTRICITABINE/TENOFOVIR ALAFENAMIDE [Suspect]
     Active Substance: COBICISTAT\ELVITEGRAVIR\EMTRICITABINE\TENOFOVIR
     Indication: HIV INFECTION
     Dosage: UNK
     Route: 048
     Dates: start: 20160727, end: 20170330
  4. DELTIUS [Concomitant]
     Active Substance: CHOLECALCIFEROL
     Dosage: 25000 IU, Q3WK

REACTIONS (1)
  - Bone lesion [Unknown]
